FAERS Safety Report 7946318-7 (Version None)
Quarter: 2011Q4

REPORT INFORMATION
  Report Type: 
  Country: None (occurrence: None)
  Receive Date: 20111129
  Receipt Date: 20111122
  Transmission Date: 20120403
  Serious: Yes (Hospitalization, Other)
  Sender: FDA-Public Use
  Company Number: US-AMGEN-USASP2011061749

PATIENT
  Age: 13 Year
  Sex: Female

DRUGS (1)
  1. ENBREL [Suspect]
     Indication: JUVENILE ARTHRITIS
     Dosage: 50 MG, UNK
     Dates: start: 20111022, end: 20111105

REACTIONS (10)
  - PARAESTHESIA [None]
  - POSTURAL ORTHOSTATIC TACHYCARDIA SYNDROME [None]
  - DYSPNOEA [None]
  - ARTHRALGIA [None]
  - CHEST PAIN [None]
  - CHEST DISCOMFORT [None]
  - POST LUMBAR PUNCTURE SYNDROME [None]
  - ABDOMINAL PAIN UPPER [None]
  - MUSCLE TWITCHING [None]
  - URTICARIA [None]
